FAERS Safety Report 8581458-3 (Version None)
Quarter: 2012Q3

REPORT INFORMATION
  Report Type: 
  Country: None (occurrence: None)
  Receive Date: 20120809
  Receipt Date: 20120801
  Transmission Date: 20120928
  Serious: Yes (Other)
  Sender: FDA-Public Use
  Company Number: DE-SANOFI-AVENTIS-2012SA052337

PATIENT
  Age: 34 Year
  Sex: Female
  Weight: 60 kg

DRUGS (4)
  1. ENOXAPARIN SODIUM [Suspect]
     Route: 058
     Dates: start: 20120201, end: 20120301
  2. RHESOGAM [Concomitant]
  3. ENOXAPARIN SODIUM [Suspect]
     Route: 058
     Dates: start: 20120301, end: 20120701
  4. IRON [Concomitant]
     Indication: IRON DEFICIENCY ANAEMIA

REACTIONS (3)
  - STILLBIRTH [None]
  - PLACENTAL INSUFFICIENCY [None]
  - MATERNAL EXPOSURE DURING PREGNANCY [None]
